FAERS Safety Report 14198104 (Version 1)
Quarter: 2017Q4

REPORT INFORMATION
  Report Type: Spontaneous
  Country: US (occurrence: US)
  Receive Date: 20171116
  Receipt Date: 20171116
  Transmission Date: 20180321
  Serious: Yes (Other)
  Sender: FDA-Public Use
  Company Number: None

PATIENT
  Age: 10 Year
  Sex: Male
  Weight: 33.3 kg

DRUGS (2)
  1. BENZONATATE 100MG [Suspect]
     Active Substance: BENZONATATE
     Indication: COUGH
     Dosage: ?          QUANTITY:1 CAPSULE(S);?
     Route: 048
     Dates: start: 20171114, end: 20171115
  2. DIGESTIVE ADVANTAGE PROBIOTIC [Concomitant]

REACTIONS (1)
  - Urticaria [None]

NARRATIVE: CASE EVENT DATE: 20171115
